FAERS Safety Report 9157923 (Version 3)
Quarter: 2013Q3

REPORT INFORMATION
  Report Type: Spontaneous
  Country: DE (occurrence: None)
  Receive Date: 20130213
  Receipt Date: 20130710
  Transmission Date: 20140515
  Serious: Yes (Hospitalization, Disabling)
  Sender: FDA-Public Use
  Company Number: ACO_34118_2013

PATIENT
  Age: 57 Year
  Sex: Male

DRUGS (10)
  1. FAMPYRA [Suspect]
     Indication: MULTIPLE SCLEROSIS
     Dates: start: 20121211, end: 20130123
  2. REBIF (INTERFERON BETA-1A) [Concomitant]
  3. MONO EMBOLEX [Concomitant]
  4. ASPIRN [Concomitant]
  5. CITALOPRAM [Concomitant]
  6. MYDOCALM [Concomitant]
  7. OMEPRAZOLE [Concomitant]
  8. RAMIPRIL [Concomitant]
  9. COTRIM FORTE [Concomitant]
  10. PARACETAMOL [Concomitant]

REACTIONS (5)
  - Hepatic steatosis [None]
  - Urinary tract infection [None]
  - Pseudomonas test positive [None]
  - Blood pressure increased [None]
  - Cerebrovascular accident [None]
